FAERS Safety Report 4287193-4 (Version None)
Quarter: 2004Q1

REPORT INFORMATION
  Report Type: 
  Country: None (occurrence: None)
  Receive Date: 20040126
  Receipt Date: 20030822
  Transmission Date: 20041129
  Serious: No
  Sender: FDA-Public Use
  Company Number: USA030845224

PATIENT
  Age: 69 Year
  Sex: Female

DRUGS (3)
  1. FORTEO [Suspect]
     Indication: OSTEOPOROSIS
     Dosage: 20 UG/L
     Dates: start: 20030814
  2. VICODIN [Concomitant]
  3. TYLENOL [Concomitant]

REACTIONS (3)
  - FATIGUE [None]
  - PAIN [None]
  - RECTAL HAEMORRHAGE [None]
